FAERS Safety Report 4335632-2 (Version None)
Quarter: 2004Q2

REPORT INFORMATION
  Report Type: 
  Country: None (occurrence: None)
  Receive Date: 20040409
  Receipt Date: 20010425
  Transmission Date: 20050107
  Serious: Yes (Other)
  Sender: FDA-Public Use
  Company Number: PHNU2001DE01181

PATIENT
  Age: 24 Year
  Sex: Female

DRUGS (2)
  1. TRILEPTAL [Suspect]
     Indication: SIMPLE PARTIAL SEIZURES
     Dosage: 1200MG/DAY
     Route: 048
     Dates: start: 20010401, end: 20020101
  2. GABAPENTIN [Concomitant]
     Indication: SIMPLE PARTIAL SEIZURES
     Dosage: 4.8G/DAY
     Route: 048
     Dates: start: 20020101

REACTIONS (16)
  - ANTINUCLEAR ANTIBODY POSITIVE [None]
  - ARTHRALGIA [None]
  - COUGH [None]
  - HAEMATURIA [None]
  - LEUKOPENIA [None]
  - MYALGIA [None]
  - PARAESTHESIA [None]
  - PLEURISY [None]
  - PLEURITIC PAIN [None]
  - PYREXIA [None]
  - RED BLOOD CELL SEDIMENTATION RATE INCREASED [None]
  - RESPIRATORY TRACT INFECTION [None]
  - SYNOVITIS [None]
  - SYSTEMIC LUPUS ERYTHEMATOSUS [None]
  - VERTIGO [None]
  - VISUAL DISTURBANCE [None]
